FAERS Safety Report 24041376 (Version 1)
Quarter: 2024Q3

REPORT INFORMATION
  Report Type: Spontaneous
  Country: CN (occurrence: CN)
  Receive Date: 20240702
  Receipt Date: 20240702
  Transmission Date: 20241016
  Serious: Yes (Life-Threatening, Hospitalization, Other)
  Sender: GLAND PHARMA
  Company Number: CN-GLANDPHARMA-CN-2024GLNLIT00407

PATIENT
  Age: 64 Year
  Sex: Female
  Weight: 75 kg

DRUGS (4)
  1. ROCURONIUM BROMIDE [Suspect]
     Active Substance: ROCURONIUM BROMIDE
     Indication: Muscle relaxant therapy
     Route: 042
  2. PROPOFOL [Concomitant]
     Active Substance: PROPOFOL
     Indication: Anaesthesia
     Route: 042
  3. SEVOFLURANE [Concomitant]
     Active Substance: SEVOFLURANE
     Indication: Anaesthesia
     Dosage: 1.5%-2%
     Route: 065
  4. REMIFENTANIL [Concomitant]
     Active Substance: REMIFENTANIL
     Indication: Anaesthesia
     Dosage: 100-300 UG/H
     Route: 065

REACTIONS (7)
  - Obstructive airways disorder [Recovered/Resolved]
  - Hypotonia [Recovered/Resolved]
  - Laryngeal disorder [Recovered/Resolved]
  - Pharyngeal disorder [Recovered/Resolved]
  - Pharyngeal haemorrhage [Recovered/Resolved]
  - Chondropathy [Recovered/Resolved]
  - Vocal cord disorder [Recovered/Resolved]
